FAERS Safety Report 13545363 (Version 1)
Quarter: 2017Q2

REPORT INFORMATION
  Report Type: Spontaneous
  Country: US (occurrence: US)
  Receive Date: 20170513
  Receipt Date: 20170513
  Transmission Date: 20170830
  Serious: No
  Sender: FDA-Public Use
  Company Number: None

PATIENT
  Age: 53 Year
  Sex: Female
  Weight: 150.3 kg

DRUGS (17)
  1. ASPIRIN. [Concomitant]
     Active Substance: ASPIRIN
  2. MELOXICAM. [Concomitant]
     Active Substance: MELOXICAM
  3. BLOOD PRESSURE MONITOR [Concomitant]
  4. VITAMIN D3 [Concomitant]
     Active Substance: CHOLECALCIFEROL
  5. CETRIZINE HCL [Concomitant]
  6. HONEY [Suspect]
     Active Substance: HONEY
  7. TIROSINT [Concomitant]
     Active Substance: LEVOTHYROXINE SODIUM
  8. ESOMEPRAZOLE MAGNESIUM. [Concomitant]
     Active Substance: ESOMEPRAZOLE MAGNESIUM
  9. VICTOZA [Suspect]
     Active Substance: LIRAGLUTIDE
     Indication: DIABETES MELLITUS
     Dosage: ?          QUANTITY:1.2 INJECTION(S);?
     Route: 058
     Dates: start: 20170501
  10. LISINOPRIL/HCTZ [Concomitant]
     Active Substance: HYDROCHLOROTHIAZIDE\LISINOPRIL
  11. LORATIDINE [Concomitant]
     Active Substance: LORATADINE
  12. LISINOPRIL. [Concomitant]
     Active Substance: LISINOPRIL
  13. FUROSEMIDE. [Concomitant]
     Active Substance: FUROSEMIDE
  14. ORGANIC APPLE CIDER VINEGAR AND LOCAL HONEY [Concomitant]
  15. BLOOD SUGAR MONITOR AND ACCESSORIES [Concomitant]
  16. WHEY PROTEIN [Concomitant]
     Active Substance: WHEY
  17. METFORMIN [Concomitant]
     Active Substance: METFORMIN HYDROCHLORIDE

REACTIONS (11)
  - Flatulence [None]
  - Parosmia [None]
  - Weight decreased [None]
  - Fluid intake reduced [None]
  - Feeding disorder [None]
  - Nausea [None]
  - Dysgeusia [None]
  - Eructation [None]
  - Diarrhoea [None]
  - Breath odour [None]
  - Vomiting [None]

NARRATIVE: CASE EVENT DATE: 20170509
